FAERS Safety Report 5196407-8 (Version None)
Quarter: 2006Q4

REPORT INFORMATION
  Report Type: 
  Country: None (occurrence: None)
  Receive Date: 20061222
  Receipt Date: 20061211
  Transmission Date: 20070319
  Serious: Yes (Hospitalization, Disabling)
  Sender: FDA-Public Use
  Company Number: 2004000759

PATIENT
  Age: 51 Year
  Sex: Male

DRUGS (5)
  1. ERLOTINIB (TABLET) (ERLOTINIB HC1) [Suspect]
     Indication: NON-SMALL CELL LUNG CANCER
     Dosage: 150 MG (QD) ORAL
     Route: 048
     Dates: start: 20040930, end: 20041013
  2. OMEPRAZOLE [Concomitant]
  3. DEXAMTHASONE [Concomitant]
  4. ANALGESICS [Concomitant]
  5. MORPHINE [Concomitant]

REACTIONS (11)
  - ANXIETY [None]
  - ASTHENIA [None]
  - BAND NEUTROPHIL COUNT INCREASED [None]
  - CARDIAC OUTPUT DECREASED [None]
  - COORDINATION ABNORMAL [None]
  - DISEASE PROGRESSION [None]
  - MALAISE [None]
  - MEDIASTINAL SHIFT [None]
  - MYALGIA [None]
  - PLEURAL EFFUSION [None]
  - WHITE BLOOD CELL COUNT INCREASED [None]
